FAERS Safety Report 14482749 (Version 6)
Quarter: 2020Q4

REPORT INFORMATION
  Report Type: Spontaneous
  Country: IT (occurrence: IT)
  Receive Date: 20180203
  Receipt Date: 20201006
  Transmission Date: 20210113
  Serious: Yes (Life-Threatening, Other)
  Sender: FDA-Public Use
  Company Number: IT-AUROBINDO-AUR-APL-2018-004388

PATIENT
  Age: 65 Year
  Sex: Male

DRUGS (7)
  1. CARVEDILOL FILM-COATED TABLETS [Suspect]
     Active Substance: CARVEDILOL
     Indication: HYPERTENSION
     Dosage: STOP DATE: UNKNOWN DATE OF 2017 OR 2018 ()
     Route: 048
     Dates: start: 2010
  2. HAWTHORN [Concomitant]
     Active Substance: CRATAEGUS LAEVIGATA FRUIT
     Indication: PRODUCT USED FOR UNKNOWN INDICATION
     Route: 065
  3. DOXAZOSIN [Suspect]
     Active Substance: DOXAZOSIN MESYLATE
     Indication: HYPERTENSION
     Dosage: STOP DATE: UNKNOWN DATE OF 2017 OR 2018 ()
     Route: 048
     Dates: start: 2010
  4. RAMIPRIL+HYDROCHLOROTHIAZIDE [Suspect]
     Active Substance: HYDROCHLOROTHIAZIDE\RAMIPRIL
     Indication: HYPERTENSION
     Dosage: ()
     Route: 065
     Dates: start: 2010
  5. RAMIPRIL. [Suspect]
     Active Substance: RAMIPRIL
     Indication: HYPERTENSION
     Dosage: STOP DATE: UNKNOWN DATE OF 2017 OR 2018 ()
     Route: 048
     Dates: start: 2010
  6. OLEA EUROPAEA LEAF EXTRACT [Concomitant]
     Active Substance: HERBALS
     Indication: PRODUCT USED FOR UNKNOWN INDICATION
  7. HAWTHORN [Concomitant]
     Active Substance: CRATAEGUS LAEVIGATA FRUIT
     Dosage: ()

REACTIONS (17)
  - Angioedema [Recovering/Resolving]
  - Asthma [Recovering/Resolving]
  - Abdominal distension [Recovering/Resolving]
  - Dyspnoea [Recovering/Resolving]
  - Cough [Recovering/Resolving]
  - Localised oedema [Unknown]
  - Gastric disorder [Recovering/Resolving]
  - Bronchial disorder [Recovering/Resolving]
  - Oesophageal disorder [Recovering/Resolving]
  - Salivary hypersecretion [Recovering/Resolving]
  - Somnolence [Recovering/Resolving]
  - Oedema peripheral [Recovering/Resolving]
  - Speech disorder [Recovering/Resolving]
  - Abdominal discomfort [Unknown]
  - Mouth breathing [Recovering/Resolving]
  - Orthostatic hypotension [Recovering/Resolving]
  - Respiratory disorder [Unknown]

NARRATIVE: CASE EVENT DATE: 2017
